FAERS Safety Report 5124762-3 (Version None)
Quarter: 2006Q4

REPORT INFORMATION
  Report Type: 
  Country: None (occurrence: None)
  Receive Date: 20061006
  Receipt Date: 20061006
  Transmission Date: 20070319
  Serious: Yes (Hospitalization)
  Sender: FDA-Public Use
  Company Number: None

PATIENT
  Sex: Male

DRUGS (39)
  1. TARCEVA [Suspect]
     Dosage: 150 MG  SEE IMAGE
     Dates: end: 20060822
  2. XANAX [Concomitant]
  3. VASOTEC [Concomitant]
  4. VERAPAMIL ER [Concomitant]
  5. PAXIL CR [Concomitant]
  6. VIAGRA [Concomitant]
  7. ADVIL COLD AND SINUS [Concomitant]
  8. ATIVAN [Concomitant]
  9. COMPAZINE [Concomitant]
  10. EMEND [Concomitant]
  11. SALIGEN [Concomitant]
  12. ZANTAC [Concomitant]
  13. SENNEKOT [Concomitant]
  14. M.V.I. [Concomitant]
  15. NORCO [Concomitant]
  16. ZEGARID [Concomitant]
  17. MUCINEX [Concomitant]
  18. FENTANYL [Concomitant]
  19. CLARITIN [Concomitant]
  20. ZIMMERS SWISH [Concomitant]
  21. LEVAQUIN [Concomitant]
  22. MINOCYCLINE HCL [Concomitant]
  23. REGLAN [Concomitant]
  24. ROXANOL [Concomitant]
  25. GAUFENASSIN [Concomitant]
  26. KETOCONAZOLE OINT [Concomitant]
  27. ADVIL [Concomitant]
  28. TYLENOL [Concomitant]
  29. ALOXI [Concomitant]
  30. POTASSIUM [Concomitant]
  31. LORTAB [Concomitant]
  32. ATIVAN [Concomitant]
  33. ZOSYN [Concomitant]
  34. NUTRIN [Concomitant]
  35. PROBALANC [Concomitant]
  36. MORPHINE [Concomitant]
  37. NS WITH KCL [Concomitant]
  38. POTASSIUM CHLORIDE [Concomitant]
  39. POTASSIUM PHOSPHATES [Concomitant]

REACTIONS (40)
  - ASPIRATION [None]
  - ASTHENIA [None]
  - BLOOD ALBUMIN DECREASED [None]
  - BLOOD POTASSIUM DECREASED [None]
  - BREATH ODOUR [None]
  - CEREBRAL ATROPHY [None]
  - CONSTIPATION [None]
  - COUGH [None]
  - DEHYDRATION [None]
  - DIZZINESS [None]
  - DYSPHAGIA [None]
  - DYSPNOEA [None]
  - DYSPNOEA EXERTIONAL [None]
  - EAR PAIN [None]
  - EYE PAIN [None]
  - FACIAL PAIN [None]
  - FATIGUE [None]
  - HAEMOGLOBIN DECREASED [None]
  - HEADACHE [None]
  - INCREASED UPPER AIRWAY SECRETION [None]
  - INFECTION [None]
  - INFUSION RELATED REACTION [None]
  - INSOMNIA [None]
  - LUNG INFILTRATION [None]
  - MALNUTRITION [None]
  - NAUSEA [None]
  - PAIN [None]
  - PALLOR [None]
  - PLATELET COUNT INCREASED [None]
  - PNEUMONIA [None]
  - RASH [None]
  - REFUSAL OF TREATMENT BY PATIENT [None]
  - SKIN DISCOLOURATION [None]
  - SOMNOLENCE [None]
  - TONGUE DISCOLOURATION [None]
  - TOOTHACHE [None]
  - TREATMENT NONCOMPLIANCE [None]
  - UNEVALUABLE EVENT [None]
  - WEIGHT DECREASED [None]
  - WHITE BLOOD CELL COUNT INCREASED [None]
